FAERS Safety Report 24242724 (Version 3)
Quarter: 2024Q4

REPORT INFORMATION
  Report Type: Spontaneous
  Country: GR (occurrence: GR)
  Receive Date: 20240823
  Receipt Date: 20241212
  Transmission Date: 20250115
  Serious: No
  Sender: PFIZER
  Company Number: GR-PFIZER INC-202400238161

PATIENT
  Age: 14 Year
  Sex: Male
  Weight: 51 kg

DRUGS (2)
  1. GENOTROPIN [Suspect]
     Active Substance: SOMATROPIN
     Indication: Dwarfism
     Dosage: MONDAY1.4MG/TUESDAY:1.4MG/WEDNESDAY:1.6MG/THURSDAY:1.4MG/FRIDAY:1.6MG/SATURDAY: DAY OFF/SUNDAY:1.6MG
     Route: 058
     Dates: start: 202404
  2. MINIRIN [Concomitant]
     Active Substance: DESMOPRESSIN ACETATE
     Dosage: UNK

REACTIONS (4)
  - Device use error [Unknown]
  - Device breakage [Unknown]
  - Wrong technique in product usage process [Unknown]
  - Drug dose omission by device [Unknown]

NARRATIVE: CASE EVENT DATE: 20240801
